FAERS Safety Report 10068556 (Version 1)
Quarter: 2014Q2

REPORT INFORMATION
  Report Type: Spontaneous
  Country: US (occurrence: US)
  Receive Date: 20140409
  Receipt Date: 20140409
  Transmission Date: 20141212
  Serious: Yes (Other)
  Sender: FDA-Public Use
  Company Number: US-PFIZER INC-2014099798

PATIENT
  Age: 52 Year
  Sex: Female
  Weight: 108.84 kg

DRUGS (1)
  1. GEODON [Suspect]
     Indication: CRANIOCEREBRAL INJURY
     Dosage: 60 MG, 1X/DAY
     Route: 048
     Dates: start: 2000

REACTIONS (6)
  - Craniocerebral injury [Unknown]
  - Brain injury [Unknown]
  - Weight increased [Unknown]
  - Blood cholesterol increased [Unknown]
  - Hyperglycaemia [Unknown]
  - Back injury [Unknown]
